FAERS Safety Report 4267691-X (Version None)
Quarter: 2004Q1

REPORT INFORMATION
  Report Type: 
  Country: None (occurrence: None)
  Receive Date: 20040109
  Receipt Date: 20040101
  Transmission Date: 20041129
  Serious: Yes (Hospitalization)
  Sender: FDA-Public Use
  Company Number: PHEH2004US00568

PATIENT
  Sex: Female

DRUGS (5)
  1. ZELNORM [Suspect]
     Dosage: 1 DF, ONCE/SINGLE
     Route: 048
     Dates: start: 20031212, end: 20031212
  2. HORMONES [Concomitant]
  3. MULTIVITAMIN [Concomitant]
  4. ACETYLSALICYLIC ACID SRT [Concomitant]
  5. CALCIUM [Concomitant]

REACTIONS (3)
  - COLITIS ISCHAEMIC [None]
  - HAEMATOCHEZIA [None]
  - NAUSEA [None]
